FAERS Safety Report 24763718 (Version 2)
Quarter: 2024Q4

REPORT INFORMATION
  Report Type: Report from Study
  Country: US (occurrence: US)
  Receive Date: 20241223
  Receipt Date: 20241226
  Transmission Date: 20250115
  Serious: Yes (Hospitalization, Other)
  Sender: ROCHE
  Company Number: US-ROCHE-10000157781

PATIENT
  Age: 78 Year
  Sex: Female

DRUGS (28)
  1. TECENTRIQ [Suspect]
     Active Substance: ATEZOLIZUMAB
     Indication: Lung neoplasm malignant
     Route: 065
  2. TECENTRIQ [Suspect]
     Active Substance: ATEZOLIZUMAB
     Indication: Renal disorder
     Route: 065
     Dates: start: 20201006, end: 20201209
  3. TECENTRIQ [Suspect]
     Active Substance: ATEZOLIZUMAB
     Indication: Ureteral disorder
     Route: 065
     Dates: start: 20201230
  4. TECENTRIQ [Suspect]
     Active Substance: ATEZOLIZUMAB
     Route: 065
     Dates: start: 20211027
  5. TECENTRIQ [Suspect]
     Active Substance: ATEZOLIZUMAB
     Route: 065
     Dates: start: 20240313
  6. ZOLEDRONIC ACID [Concomitant]
     Active Substance: ZOLEDRONIC ACID
     Dosage: YEARLY
     Route: 042
     Dates: start: 202304
  7. CARBOPLATIN [Concomitant]
     Active Substance: CARBOPLATIN
  8. TAXOL [Concomitant]
     Active Substance: PACLITAXEL
  9. LORATADINE [Concomitant]
     Active Substance: LORATADINE
     Dosage: DAILY
     Route: 048
  10. LANTUS SOLOSTAR [Concomitant]
     Active Substance: INSULIN GLARGINE
  11. ZOFRAN [Concomitant]
     Active Substance: ONDANSETRON HYDROCHLORIDE
     Route: 048
  12. EMLA [Concomitant]
     Active Substance: LIDOCAINE\PRILOCAINE
     Dosage: 2.5 % TOPICAL CREAM
     Route: 061
  13. OMEPRAZOLE [Concomitant]
     Active Substance: OMEPRAZOLE
     Dosage: DAILY
     Route: 048
  14. SUCRALFATE [Concomitant]
     Active Substance: SUCRALFATE
  15. LEVOTHYROXINE [Concomitant]
     Active Substance: LEVOTHYROXINE
     Route: 048
  16. METOCLOPRAMIDE [Concomitant]
     Active Substance: METOCLOPRAMIDE
     Route: 048
  17. POTASSIUM CHLORIDE [Concomitant]
     Active Substance: POTASSIUM CHLORIDE
     Dosage: DAILY
     Route: 048
  18. ERGOCALCIFEROL [Concomitant]
     Active Substance: ERGOCALCIFEROL
     Route: 048
  19. ONDANSETRON [Concomitant]
     Active Substance: ONDANSETRON
  20. hepairn [Concomitant]
     Dosage: 100 UNIT/ML?500  UNIT/ML?NORMAL FLUSH SALINE DOSE 20 ML
     Route: 042
  21. ALTEPLASE [Concomitant]
     Active Substance: ALTEPLASE
     Route: 042
  22. ATORVASTATIN [Concomitant]
     Active Substance: ATORVASTATIN
     Route: 048
  23. ATORVASTATIN [Concomitant]
     Active Substance: ATORVASTATIN
     Dosage: EVERY EVENING
     Route: 048
  24. CALCIUM CARBONATE [Concomitant]
     Active Substance: CALCIUM CARBONATE
     Dosage: DAILY
     Route: 048
  25. CITALOPRAM [Concomitant]
     Active Substance: CITALOPRAM
     Route: 048
  26. DOCUSATE SODIUM [Concomitant]
     Active Substance: DOCUSATE SODIUM
     Route: 048
  27. HYDROCORTISONE [Concomitant]
     Active Substance: HYDROCORTISONE
     Dosage: 30 MG 3 TABLET ORAL DAILY
     Route: 048
  28. LANTUS SOLOSTAR [Concomitant]
     Active Substance: INSULIN GLARGINE
     Dosage: 100 UNIT /ML

REACTIONS (25)
  - Adrenal insufficiency [Unknown]
  - Hyponatraemia [Unknown]
  - Hypertension [Unknown]
  - Osteoporosis [Unknown]
  - Meningioma [Unknown]
  - Renal mass [Unknown]
  - Pain [Unknown]
  - Gastrooesophageal reflux disease [Unknown]
  - Anaemia [Unknown]
  - Headache [Unknown]
  - Hypercalcaemia [Unknown]
  - Hypomagnesaemia [Unknown]
  - Tremor [Unknown]
  - Blood urea increased [Unknown]
  - C-reactive protein increased [Unknown]
  - Oesophageal adenocarcinoma [Not Recovered/Not Resolved]
  - Septic shock [Recovered/Resolved]
  - Colitis ischaemic [Unknown]
  - Cellulitis [Unknown]
  - COVID-19 [Unknown]
  - Renal disorder [Unknown]
  - Adrenal disorder [Unknown]
  - Hypotension [Recovered/Resolved]
  - Breast disorder [Unknown]
  - Vitamin D deficiency [Unknown]

NARRATIVE: CASE EVENT DATE: 20230301
